FAERS Safety Report 5238082-X (Version None)
Quarter: 2007Q1

REPORT INFORMATION
  Report Type: 
  Country: None (occurrence: None)
  Receive Date: 20070215
  Receipt Date: 20070202
  Transmission Date: 20070707
  Serious: Yes (Other)
  Sender: FDA-Public Use
  Company Number: US-KINGPHARMUSA00001-K200700131

PATIENT

DRUGS (5)
  1. CYTOMEL [Suspect]
     Indication: THYROID DISORDER
     Dosage: 15 MCG, QD
     Route: 048
     Dates: start: 19950101, end: 20030101
  2. SYNTHROID [Concomitant]
     Indication: HYPOTHYROIDISM
     Route: 048
  3. PROZAC [Concomitant]
     Route: 048
  4. AMBIEN [Concomitant]
     Indication: INSOMNIA
     Route: 048
  5. CALCITRIOL [Concomitant]
     Indication: MINERAL SUPPLEMENTATION
     Dosage: UNK, UNK
     Route: 048

REACTIONS (2)
  - COLLAPSE OF LUNG [None]
  - PARALYSIS [None]
